FAERS Safety Report 9993704 (Version 5)
Quarter: 2014Q2

REPORT INFORMATION
  Report Type: Report from Study
  Country: AU (occurrence: AU)
  Receive Date: 20140310
  Receipt Date: 20140624
  Transmission Date: 20141212
  Serious: Yes (Death, Hospitalization)
  Sender: FDA-Public Use
  Company Number: PHHY2014AU028968

PATIENT
  Age: 69 Year
  Sex: Female

DRUGS (2)
  1. CLOZARIL [Suspect]
     Indication: SCHIZOPHRENIA
     Dosage: 200 MG, UNK
     Dates: start: 19961213, end: 20121023
  2. CLOZARIL [Suspect]
     Dosage: 200 MG, NOCTE
     Route: 048
     Dates: start: 20130320

REACTIONS (9)
  - Histiocytosis [Fatal]
  - Leukaemia [Unknown]
  - Neoplasm [Unknown]
  - Langerhans^ cell histiocytosis [Unknown]
  - Pancytopenia [Unknown]
  - Leukopenia [Recovered/Resolved]
  - Neutropenia [Recovered/Resolved]
  - White blood cell count increased [Unknown]
  - Neutrophil count increased [Unknown]
